FAERS Safety Report 7417261-7 (Version None)
Quarter: 2011Q2

REPORT INFORMATION
  Report Type: 
  Country: None (occurrence: None)
  Receive Date: 20110415
  Receipt Date: 20110404
  Transmission Date: 20111010
  Serious: Yes (Congenital Anomaly)
  Sender: FDA-Public Use
  Company Number: US-KINGPHARMUSA00001-K201100399

PATIENT
  Sex: Male
  Weight: 1.95 kg

DRUGS (4)
  1. TAPAZOLE [Suspect]
     Dosage: 10 MG, PER DAY
     Route: 064
  2. AMPHETAMINE [Concomitant]
     Route: 064
  3. PROPRANOLOL [Concomitant]
     Dosage: 20 MG, THREE TIMES DAILY
     Route: 064
  4. TAPAZOLE [Suspect]
     Dosage: 40 MG, ONCE DAILY
     Route: 064

REACTIONS (9)
  - FOETAL GROWTH RESTRICTION [None]
  - DELAYED FONTANELLE CLOSURE [None]
  - HIGH ARCHED PALATE [None]
  - CAESAREAN SECTION [None]
  - ANKYLOGLOSSIA CONGENITAL [None]
  - CHOANAL ATRESIA [None]
  - MATERNAL DRUGS AFFECTING FOETUS [None]
  - SINGLE UMBILICAL ARTERY [None]
  - LOW SET EARS [None]
